FAERS Safety Report 24526797 (Version 1)
Quarter: 2024Q4

REPORT INFORMATION
  Report Type: Spontaneous
  Country: IT (occurrence: IT)
  Receive Date: 20241021
  Receipt Date: 20241021
  Transmission Date: 20250114
  Serious: No
  Sender: ROCHE
  Company Number: IT-ROCHE-3481922

PATIENT
  Age: 70 Year
  Sex: Male

DRUGS (2)
  1. VEMURAFENIB [Suspect]
     Active Substance: VEMURAFENIB
     Indication: Localised melanoma
     Route: 065
     Dates: start: 20180901
  2. COBIMETINIB [Suspect]
     Active Substance: COBIMETINIB
     Indication: Localised melanoma
     Route: 065

REACTIONS (1)
  - Skin toxicity [Unknown]
